FAERS Safety Report 6456807-2 (Version None)
Quarter: 2009Q4

REPORT INFORMATION
  Report Type: 
  Country: None (occurrence: None)
  Receive Date: 20091124
  Receipt Date: 20091124
  Transmission Date: 20100525
  Serious: Yes (Life-Threatening, Hospitalization)
  Sender: FDA-Public Use
  Company Number: None

PATIENT
  Sex: Male
  Weight: 111.5849 kg

DRUGS (1)
  1. BYETTA [Suspect]
     Indication: TYPE 2 DIABETES MELLITUS
     Dosage: 10 UG BID SQ
     Route: 058
     Dates: start: 20050101, end: 20091103

REACTIONS (3)
  - HAEMATOCRIT DECREASED [None]
  - PANCREATIC NECROSIS [None]
  - PANCREATITIS [None]
